FAERS Safety Report 22211374 (Version 3)
Quarter: 2024Q3

REPORT INFORMATION
  Report Type: Spontaneous
  Country: JP (occurrence: JP)
  Receive Date: 20230414
  Receipt Date: 20240905
  Transmission Date: 20241017
  Serious: Yes (Life-Threatening, Hospitalization, Other)
  Sender: GLAXOSMITHKLINE
  Company Number: JP-TAKEDA-2023TJP002828

PATIENT

DRUGS (2)
  1. ZEJULA [Suspect]
     Active Substance: NIRAPARIB
     Indication: Ovarian cancer
     Dosage: 200 MG
     Route: 048
     Dates: start: 202303
  2. ZEJULA [Suspect]
     Active Substance: NIRAPARIB
     Dosage: 100 MG
     Route: 048

REACTIONS (4)
  - Septic shock [Recovering/Resolving]
  - Ovarian cancer [Not Recovered/Not Resolved]
  - Platelet count decreased [Recovering/Resolving]
  - Anaemia [Recovering/Resolving]
